FAERS Safety Report 10402434 (Version 1)
Quarter: 2014Q3

REPORT INFORMATION
  Report Type: Spontaneous
  Country: GB (occurrence: GB)
  Receive Date: 20140822
  Receipt Date: 20140822
  Transmission Date: 20150326
  Serious: Yes (Other)
  Sender: FDA-Public Use
  Company Number: GB-ACTAVIS-2014-17919

PATIENT
  Sex: Male

DRUGS (2)
  1. COCODAMOL [Suspect]
     Active Substance: ACETAMINOPHEN\CODEINE PHOSPHATE
     Indication: PAIN
     Dosage: UNK
     Route: 048
  2. BILE SALTS [Suspect]
     Active Substance: BILE SALTS
     Indication: DYSPEPSIA
     Dosage: UNK
     Route: 065

REACTIONS (4)
  - Brain injury [Not Recovered/Not Resolved]
  - Condition aggravated [Unknown]
  - Cerebrovascular accident [Unknown]
  - Reaction to drug excipients [Unknown]
